FAERS Safety Report 7812863-8 (Version None)
Quarter: 2011Q4

REPORT INFORMATION
  Report Type: 
  Country: None (occurrence: None)
  Receive Date: 20111011
  Receipt Date: 20110926
  Transmission Date: 20120403
  Serious: Yes (Other)
  Sender: FDA-Public Use
  Company Number: 2011SP026696

PATIENT
  Age: 34 Year
  Sex: Female
  Weight: 52 kg

DRUGS (4)
  1. IMPLANON [Suspect]
     Indication: PRODUCT USED FOR UNKNOWN INDICATION
     Dosage: 1 DF
     Dates: start: 20090331, end: 20110618
  2. RIFAMPICIN [Suspect]
     Indication: BREAST ABSCESS
     Dosage: 3 DF;QD;PO
     Route: 048
     Dates: start: 20110322, end: 20110429
  3. FLAGYL [Suspect]
     Indication: BREAST ABSCESS
     Dates: start: 20110429
  4. INTRAUTERINE CONTRACEPTIVE DEVICE [Concomitant]

REACTIONS (7)
  - LOSS OF CONSCIOUSNESS [None]
  - PREGNANCY WITH IMPLANT CONTRACEPTIVE [None]
  - DRUG INTERACTION [None]
  - POST PROCEDURAL COMPLICATION [None]
  - GENITAL HAEMORRHAGE [None]
  - ABORTION INDUCED [None]
  - DYSKINESIA [None]
